FAERS Safety Report 7372396-2 (Version None)
Quarter: 2011Q1

REPORT INFORMATION
  Report Type: 
  Country: None (occurrence: None)
  Receive Date: 20110324
  Receipt Date: 20110315
  Transmission Date: 20110831
  Serious: Yes (Other)
  Sender: FDA-Public Use
  Company Number: US-SANOFI-AVENTIS-2011SA016181

PATIENT
  Sex: Male

DRUGS (4)
  1. LOVENOX [Concomitant]
  2. LIPITOR [Concomitant]
  3. MULTAQ [Suspect]
     Indication: ATRIAL FIBRILLATION
     Route: 065
     Dates: start: 20101001
  4. ZOCOR [Suspect]
     Route: 065

REACTIONS (3)
  - DEMYELINATION [None]
  - BLOOD CREATININE INCREASED [None]
  - TREMOR [None]
